FAERS Safety Report 15689380 (Version 1)
Quarter: 2018Q4

REPORT INFORMATION
  Report Type: Spontaneous
  Country: US (occurrence: US)
  Receive Date: 20181205
  Receipt Date: 20181205
  Transmission Date: 20190205
  Serious: Yes (Other)
  Sender: FDA-Public Use
  Company Number: US-JNJFOC-20181201851

PATIENT
  Age: 58 Year
  Sex: Female

DRUGS (1)
  1. INVOKANA [Suspect]
     Active Substance: CANAGLIFLOZIN
     Indication: TYPE 2 DIABETES MELLITUS
     Route: 048
     Dates: start: 20140904

REACTIONS (5)
  - Osteomyelitis [Unknown]
  - Toe amputation [Unknown]
  - Diabetic foot infection [Unknown]
  - Extremity necrosis [Unknown]
  - Gangrene [Unknown]

NARRATIVE: CASE EVENT DATE: 20150629
